FAERS Safety Report 5756381-X (Version None)
Quarter: 2008Q2

REPORT INFORMATION
  Report Type: 
  Country: None (occurrence: None)
  Receive Date: 20080529
  Receipt Date: 20080515
  Transmission Date: 20081010
  Serious: Yes (Other)
  Sender: FDA-Public Use
  Company Number: 2008S1001075

PATIENT
  Age: 21 Year
  Sex: Female
  Weight: 53.978 kg

DRUGS (3)
  1. ISOTRETINOIN [Suspect]
     Dosage: 40 MG;DAILY;ORAL
     Route: 048
     Dates: start: 20070108, end: 20070401
  2. ISOTRETINOIN [Suspect]
     Dosage: 40 MG;DAILY;ORAL
     Route: 048
     Dates: start: 20070601, end: 20070801
  3. ISOTRETINOIN [Suspect]
     Dosage: 40 MG;DAILY;ORAL
     Route: 048
     Dates: start: 20071001, end: 20071230

REACTIONS (3)
  - ANTEPARTUM HAEMORRHAGE [None]
  - DRUG EXPOSURE DURING PREGNANCY [None]
  - PREGNANCY [None]
